FAERS Safety Report 9145389 (Version 1)
Quarter: 2013Q1

REPORT INFORMATION
  Report Type: Spontaneous
  Country: US (occurrence: None)
  Receive Date: 20130226
  Receipt Date: 20130226
  Transmission Date: 20140127
  Serious: Yes (Other)
  Sender: FDA-Public Use
  Company Number: None

PATIENT
  Age: 64 Year
  Sex: Female

DRUGS (1)
  1. RITUXAN [Suspect]
     Indication: RHEUMATOID ARTHRITIS
     Dosage: 1000 MG  DAY-1 AND DAY 15  IV
     Route: 042
     Dates: start: 20130128, end: 20130222

REACTIONS (8)
  - Dyspnoea [None]
  - Swollen tongue [None]
  - Pharyngeal oedema [None]
  - Blood pressure decreased [None]
  - Paraesthesia [None]
  - Headache [None]
  - Hot flush [None]
  - Hypersensitivity [None]
